FAERS Safety Report 4539444-6 (Version None)
Quarter: 2004Q4

REPORT INFORMATION
  Report Type: 
  Country: None (occurrence: None)
  Receive Date: 20041228
  Receipt Date: 20040914
  Transmission Date: 20050328
  Serious: Yes (Death, Other)
  Sender: FDA-Public Use
  Company Number: PHFR2004GB03468

PATIENT
  Sex: Male

DRUGS (8)
  1. VOLTAROL [Suspect]
     Indication: PANCREATIC CARCINOMA
     Route: 048
     Dates: start: 20040714
  2. LITHIUM [Concomitant]
  3. PARACETAMOL [Concomitant]
  4. CYCLIZINE [Concomitant]
     Dosage: 50 MG, TID
  5. MORPHINE [Concomitant]
     Dosage: 5-10ML, QID
  6. LANSOPRAZOLE [Concomitant]
     Dosage: 30MG/DAY
  7. SEVREDOL [Concomitant]
  8. FENTANYL [Concomitant]

REACTIONS (5)
  - BRONCHOPNEUMONIA [None]
  - CIRCULATORY COLLAPSE [None]
  - HAEMATEMESIS [None]
  - MELAENA [None]
  - PLEURISY [None]
